FAERS Safety Report 12255808 (Version 1)
Quarter: 2016Q2

REPORT INFORMATION
  Report Type: Spontaneous
  Country: US (occurrence: None)
  Receive Date: 20160411
  Receipt Date: 20160411
  Transmission Date: 20160815
  Serious: Yes (Life-Threatening, Hospitalization)
  Sender: FDA-Public Use
  Company Number: None

PATIENT
  Age: 38 Year
  Sex: Female
  Weight: 54.89 kg

DRUGS (18)
  1. FIORICET W/O CODEINE [Concomitant]
  2. LYRICA [Concomitant]
     Active Substance: PREGABALIN
  3. CALCIUM VITAMIN D [Concomitant]
     Active Substance: CALCIUM\VITAMIN D
  4. DHEA [Concomitant]
     Active Substance: PRASTERONE
  5. DEPLIN [Concomitant]
     Active Substance: LEVOMEFOLATE CALCIUM
  6. REMERON [Concomitant]
     Active Substance: MIRTAZAPINE
  7. TOPAMAX [Concomitant]
     Active Substance: TOPIRAMATE
  8. PROBIOTIC [Concomitant]
     Active Substance: PROBIOTICS NOS
  9. TRINTELLIX [Suspect]
     Active Substance: VORTIOXETINE HYDROBROMIDE
     Indication: MAJOR DEPRESSION
     Dosage: 1 TABLET(S) IN THE MORNING TAKEN BY MOUTH
     Route: 048
     Dates: start: 20160321, end: 20160328
  10. EFFEXOR XR [Concomitant]
     Active Substance: VENLAFAXINE HYDROCHLORIDE
  11. ROBAXIN [Concomitant]
     Active Substance: METHOCARBAMOL
  12. MULTIVITAMIN [Concomitant]
     Active Substance: VITAMINS
  13. PREDNISONE. [Concomitant]
     Active Substance: PREDNISONE
  14. KLONOPIN [Concomitant]
     Active Substance: CLONAZEPAM
  15. CPAP MACHINE [Concomitant]
  16. APRI-28 [Concomitant]
  17. FLONASE [Concomitant]
     Active Substance: FLUTICASONE PROPIONATE
  18. NORVASC [Concomitant]
     Active Substance: AMLODIPINE BESYLATE

REACTIONS (3)
  - Irritability [None]
  - Suicidal ideation [None]
  - Agitation [None]

NARRATIVE: CASE EVENT DATE: 20160328
